FAERS Safety Report 20755840 (Version 1)
Quarter: 2022Q2

REPORT INFORMATION
  Report Type: Report from Study
  Country: US (occurrence: US)
  Receive Date: 20220427
  Receipt Date: 20220427
  Transmission Date: 20220720
  Serious: Yes (Hospitalization)
  Sender: FDA-Public Use
  Company Number: US-BAXTER-2022BAX008616

PATIENT
  Age: 1 Year
  Sex: Male
  Weight: 9.7 kg

DRUGS (4)
  1. CYCLOPHOSPHAMIDE [Suspect]
     Active Substance: CYCLOPHOSPHAMIDE
     Indication: Embryonal rhabdomyosarcoma
     Dosage: FIRST REGIMEN, DAILY CYCLIC (MAINTENANCE (CYCLE = 28 DAYS)
     Route: 065
     Dates: start: 20210122
  2. CYTOXAN [Suspect]
     Active Substance: CYCLOPHOSPHAMIDE
     Indication: Embryonal rhabdomyosarcoma
     Dosage: SECOND REGIMEN
     Route: 048
     Dates: start: 20211202
  3. TEMSIROLIMUS [Suspect]
     Active Substance: TEMSIROLIMUS
     Indication: Embryonal rhabdomyosarcoma
     Dosage: CYCLIC (CYCLES 11-14 (CYCLE = 21 DAYS): (15MG/M2 OR PER PROTOCOL D1,8,15)
     Route: 065
     Dates: start: 20210122, end: 20211122
  4. VINORELBINE TARTRATE [Suspect]
     Active Substance: VINORELBINE TARTRATE
     Indication: Embryonal rhabdomyosarcoma
     Route: 065
     Dates: start: 20211202

REACTIONS (3)
  - Lethargy [Recovered/Resolved]
  - Pyrexia [Recovered/Resolved]
  - Constipation [Recovered/Resolved]

NARRATIVE: CASE EVENT DATE: 20211203
